FAERS Safety Report 8336801-7 (Version None)
Quarter: 2012Q2

REPORT INFORMATION
  Report Type: 
  Country: None (occurrence: None)
  Receive Date: 20120504
  Receipt Date: 20120424
  Transmission Date: 20120825
  Serious: Yes (Other)
  Sender: FDA-Public Use
  Company Number: US-JNJFOC-20120412444

PATIENT
  Sex: Male
  Weight: 92.53 kg

DRUGS (6)
  1. DURAGESIC-100 [Suspect]
     Route: 062
  2. DURAGESIC-100 [Suspect]
     Route: 062
     Dates: end: 20030801
  3. FENTANYL-100 [Suspect]
     Indication: PAIN MANAGEMENT
     Route: 062
  4. DURAGESIC-100 [Suspect]
     Route: 062
     Dates: start: 20030801, end: 20030801
  5. OXYCODONE HCL [Suspect]
     Indication: PAIN
     Dosage: 10-325 MG
     Route: 065
  6. DURAGESIC-100 [Suspect]
     Indication: PAIN MANAGEMENT
     Route: 062

REACTIONS (8)
  - ENZYME ABNORMALITY [None]
  - PAIN [None]
  - DRUG INEFFECTIVE [None]
  - HEPATOMEGALY [None]
  - FEELING ABNORMAL [None]
  - WHITE BLOOD CELL COUNT INCREASED [None]
  - WITHDRAWAL SYNDROME [None]
  - THERAPEUTIC RESPONSE DECREASED [None]
